FAERS Safety Report 10057002 (Version 2)
Quarter: 2014Q2

REPORT INFORMATION
  Report Type: Spontaneous
  Country: US (occurrence: US)
  Receive Date: 20140403
  Receipt Date: 20140416
  Transmission Date: 20141212
  Serious: Yes (Death)
  Sender: FDA-Public Use
  Company Number: US-TAKEDA-2014TUS002519

PATIENT
  Age: 51 Year
  Sex: Male

DRUGS (1)
  1. PREVACID [Suspect]
     Indication: PRODUCT USED FOR UNKNOWN INDICATION
     Dosage: 6 DF ONCE DAILY
     Route: 048

REACTIONS (2)
  - Death [Fatal]
  - Overdose [Unknown]
